FAERS Safety Report 4283168-X (Version None)
Quarter: 2004Q1

REPORT INFORMATION
  Report Type: 
  Country: None (occurrence: None)
  Receive Date: 20040116
  Receipt Date: 20040107
  Transmission Date: 20041129
  Serious: Yes (Disabling)
  Sender: FDA-Public Use
  Company Number: CART-10279

PATIENT
  Age: 22 Year
  Sex: Male
  Weight: 136.0791 kg

DRUGS (3)
  1. CARTICEL [Suspect]
     Indication: BONE DISORDER
     Dosage: 1 NA ONCE IS
     Route: 035
     Dates: start: 20020508, end: 20020508
  2. VICODIN [Concomitant]
  3. ULTRAM [Concomitant]

REACTIONS (1)
  - GRAFT COMPLICATION [None]
